FAERS Safety Report 16919918 (Version 1)
Quarter: 2019Q4

REPORT INFORMATION
  Report Type: Spontaneous
  Country: US (occurrence: US)
  Receive Date: 20191015
  Receipt Date: 20191015
  Transmission Date: 20200122
  Serious: No
  Sender: FDA-Public Use
  Company Number: US-TEVA-2019-US-1121158

PATIENT
  Sex: Male

DRUGS (1)
  1. CLONAZEPAM TEVA [Suspect]
     Active Substance: CLONAZEPAM
     Dates: start: 201910

REACTIONS (4)
  - Dizziness [Unknown]
  - Sedation [Unknown]
  - Drug intolerance [Unknown]
  - Somnolence [Unknown]

NARRATIVE: CASE EVENT DATE: 201910
